FAERS Safety Report 4837260-9 (Version None)
Quarter: 2005Q4

REPORT INFORMATION
  Report Type: 
  Country: None (occurrence: None)
  Receive Date: 20051122
  Receipt Date: 20051111
  Transmission Date: 20060501
  Serious: Yes (Life-Threatening, Hospitalization)
  Sender: FDA-Public Use
  Company Number: 55

PATIENT
  Age: 22 Year
  Sex: Female

DRUGS (3)
  1. DYNACIN [Suspect]
  2. THYROID REPLACEMENT [Concomitant]
  3. AZITHROMYCIN [Concomitant]

REACTIONS (18)
  - ANGIONEUROTIC OEDEMA [None]
  - CARDIAC INDEX DECREASED [None]
  - CARDIOGENIC SHOCK [None]
  - CHEST PAIN [None]
  - DYSPNOEA [None]
  - EOSINOPHIL COUNT INCREASED [None]
  - EOSINOPHILIA [None]
  - HEART RATE INCREASED [None]
  - LARYNGEAL OEDEMA [None]
  - MYALGIA [None]
  - MYOCARDIAL INFARCTION [None]
  - PHARYNGITIS [None]
  - THROAT TIGHTNESS [None]
  - URTICARIA [None]
  - VENTRICULAR DYSFUNCTION [None]
  - VIRAL INFECTION [None]
  - WHITE BLOOD CELL COUNT DECREASED [None]
  - WHITE BLOOD CELL COUNT INCREASED [None]
